FAERS Safety Report 24244747 (Version 1)
Quarter: 2024Q3

REPORT INFORMATION
  Report Type: Spontaneous
  Country: ES (occurrence: ES)
  Receive Date: 20240823
  Receipt Date: 20240823
  Transmission Date: 20241016
  Serious: Yes (Other)
  Sender: TEVA
  Company Number: None

PATIENT
  Age: 78 Year
  Sex: Male

DRUGS (1)
  1. CIPROFLOXACIN [Suspect]
     Active Substance: CIPROFLOXACIN
     Indication: Infection
     Dosage: 750 MG EVERY 12 HOURS,
     Route: 048
     Dates: start: 20240725, end: 20240728

REACTIONS (2)
  - Tendonitis [Unknown]
  - Torticollis [Unknown]

NARRATIVE: CASE EVENT DATE: 20240728
